FAERS Safety Report 7589988-8 (Version None)
Quarter: 2011Q3

REPORT INFORMATION
  Report Type: 
  Country: None (occurrence: None)
  Receive Date: 20110705
  Receipt Date: 20110627
  Transmission Date: 20111222
  Serious: Yes (Disabling, Other)
  Sender: FDA-Public Use
  Company Number: A0927328A

PATIENT
  Age: 19 Year
  Sex: Female

DRUGS (3)
  1. ZONEGRAN [Concomitant]
  2. ETHINYL ESTRADIOL AND NORETHINDRONE [Concomitant]
  3. LAMICTAL XR [Suspect]
     Dosage: 400MG AT NIGHT
     Route: 048
     Dates: start: 20101014

REACTIONS (10)
  - SOMNOLENCE [None]
  - DRUG LEVEL DECREASED [None]
  - MEMORY IMPAIRMENT [None]
  - DISORIENTATION [None]
  - CONVULSION [None]
  - EXPIRED DRUG ADMINISTERED [None]
  - LOSS OF CONSCIOUSNESS [None]
  - PRODUCT QUALITY ISSUE [None]
  - IMPAIRED DRIVING ABILITY [None]
  - DRUG INEFFECTIVE [None]
